FAERS Safety Report 8779756 (Version 1)
Quarter: 2012Q4

REPORT INFORMATION
  Report Type: 
  Country: US (occurrence: US)
  Receive Date: 20120912
  Receipt Date: 20120912
  Transmission Date: 20130627
  Serious: No
  Sender: FDA-Public Use
  Company Number: US-VERTEX PHARMACEUTICAL INC.-AE-2011-004959

PATIENT
  Age: 64 Year
  Sex: Female
  Weight: 68 kg

DRUGS (7)
  1. INCIVEK [Suspect]
     Indication: HEPATITIS C
     Route: 048
     Dates: start: 20110721, end: 20111013
  2. RIBAVIRIN [Concomitant]
     Indication: HEPATITIS C
     Route: 048
     Dates: start: 20110721
  3. PEGASYS [Concomitant]
     Indication: HEPATITIS C
     Route: 058
     Dates: start: 20110721
  4. CELEXA [Concomitant]
     Dates: start: 201205
  5. LOSARTAN/HCT [Concomitant]
  6. TEMAZEPAM [Concomitant]
  7. VERAPAMIL [Concomitant]
     Indication: HYPERTENSION

REACTIONS (4)
  - Retinal exudates [Unknown]
  - Ocular hyperaemia [Unknown]
  - Haemoglobin decreased [Unknown]
  - Pruritus [Recovered/Resolved]
